FAERS Safety Report 5004236-0 (Version None)
Quarter: 2006Q2

REPORT INFORMATION
  Report Type: 
  Country: None (occurrence: None)
  Receive Date: 20060517
  Receipt Date: 20060410
  Transmission Date: 20061013
  Serious: Yes (Hospitalization)
  Sender: FDA-Public Use
  Company Number: US-MERCK-0604USA01765

PATIENT
  Age: 65 Year
  Sex: Male
  Weight: 114 kg

DRUGS (14)
  1. VIOXX [Suspect]
     Indication: OSTEOARTHRITIS
     Route: 048
     Dates: start: 20030130, end: 20040930
  2. LOVENOX [Concomitant]
     Route: 065
  3. LISINOPRIL [Concomitant]
     Route: 065
  4. LISINOPRIL [Concomitant]
     Route: 065
  5. HYDROCHLOROTHIAZIDE [Concomitant]
     Route: 065
  6. MAGNESIUM (UNSPECIFIED) [Concomitant]
     Indication: ROUTINE HEALTH MAINTENANCE
     Route: 065
  7. CALCIUM (UNSPECIFIED) [Concomitant]
     Indication: ROUTINE HEALTH MAINTENANCE
     Route: 065
  8. ZINC (UNSPECIFIED) [Concomitant]
     Indication: ROUTINE HEALTH MAINTENANCE
     Route: 065
  9. FLEXERIL [Concomitant]
     Route: 065
  10. ADVAIR DISKUS 100/50 [Concomitant]
     Route: 065
  11. ALBUTEROL [Concomitant]
     Route: 065
  12. LOPRESSOR [Concomitant]
     Route: 065
  13. MSM COMPLETE [Concomitant]
     Route: 065
  14. PRINIVIL [Concomitant]
     Route: 065

REACTIONS (12)
  - ARTHROPATHY [None]
  - ASTHMA [None]
  - ATRIAL FLUTTER [None]
  - CARDIOMEGALY [None]
  - COUGH [None]
  - DYSPNOEA [None]
  - HYPERKALAEMIA [None]
  - HYPERTENSION [None]
  - INTERVERTEBRAL DISC PROTRUSION [None]
  - ISCHAEMIC STROKE [None]
  - RENAL FAILURE [None]
  - WHEEZING [None]
